FAERS Safety Report 13055639 (Version 1)
Quarter: 2016Q4

REPORT INFORMATION
  Report Type: Spontaneous
  Country: US (occurrence: US)
  Receive Date: 20161222
  Receipt Date: 20161222
  Transmission Date: 20170207
  Serious: Yes (Death)
  Sender: FDA-Public Use
  Company Number: US-RELYPSA-RLY2016004401

PATIENT
  Age: 65 Year
  Sex: Male

DRUGS (17)
  1. VELTASSA [Suspect]
     Active Substance: PATIROMER
     Indication: HYPERKALAEMIA
     Dosage: 16.8 MG, QD
     Route: 048
     Dates: start: 20160610
  2. SIMVASTATIN. [Concomitant]
     Active Substance: SIMVASTATIN
  3. FENTANYL. [Concomitant]
     Active Substance: FENTANYL
  4. ZOLOFT [Concomitant]
     Active Substance: SERTRALINE HYDROCHLORIDE
  5. ZYRTEC [Concomitant]
     Active Substance: CETIRIZINE HYDROCHLORIDE
  6. PREDNISONE. [Concomitant]
     Active Substance: PREDNISONE
  7. NITROSTAT [Concomitant]
     Active Substance: NITROGLYCERIN
  8. ATENOLOL. [Concomitant]
     Active Substance: ATENOLOL
  9. HUMALOG [Concomitant]
     Active Substance: INSULIN LISPRO
  10. FUROSEMIDE. [Concomitant]
     Active Substance: FUROSEMIDE
  11. LEVEMIR [Concomitant]
     Active Substance: INSULIN DETEMIR
  12. FLOMAX [Concomitant]
     Active Substance: TAMSULOSIN HYDROCHLORIDE
  13. COLACE [Concomitant]
     Active Substance: DOCUSATE SODIUM
  14. NEURONTIN [Concomitant]
     Active Substance: GABAPENTIN
  15. VISTARIL [Concomitant]
     Active Substance: HYDROXYZINE PAMOATE
  16. HYDROCODONE [Concomitant]
     Active Substance: HYDROCODONE
  17. PLAVIX [Concomitant]
     Active Substance: CLOPIDOGREL BISULFATE

REACTIONS (1)
  - Death [Fatal]

NARRATIVE: CASE EVENT DATE: 20161207
